FAERS Safety Report 10534967 (Version 1)
Quarter: 2014Q4

REPORT INFORMATION
  Report Type: Spontaneous
  Country: US (occurrence: US)
  Receive Date: 20141022
  Receipt Date: 20141022
  Transmission Date: 20150529
  Serious: No
  Sender: FDA-Public Use
  Company Number: US-ASTRAZENECA-2013SE83319

PATIENT
  Sex: Female

DRUGS (3)
  1. CRESTOR [Suspect]
     Active Substance: ROSUVASTATIN CALCIUM
     Indication: BLOOD CHOLESTEROL INCREASED
     Route: 048
  2. CRESTOR [Suspect]
     Active Substance: ROSUVASTATIN CALCIUM
     Indication: BLOOD CHOLESTEROL INCREASED
     Route: 048
  3. CRESTOR [Suspect]
     Active Substance: ROSUVASTATIN CALCIUM
     Indication: BLOOD CHOLESTEROL INCREASED
     Route: 048

REACTIONS (13)
  - Intentional product misuse [Unknown]
  - Dyspepsia [Not Recovered/Not Resolved]
  - Feeling abnormal [Unknown]
  - Eating disorder symptom [Unknown]
  - Muscular weakness [Not Recovered/Not Resolved]
  - Asthenia [Unknown]
  - Sinus disorder [Unknown]
  - Gastrooesophageal reflux disease [Not Recovered/Not Resolved]
  - Dizziness [Not Recovered/Not Resolved]
  - Chest discomfort [Not Recovered/Not Resolved]
  - Decreased appetite [Unknown]
  - Arthritis [Not Recovered/Not Resolved]
  - Musculoskeletal disorder [Unknown]
